FAERS Safety Report 12606360 (Version 1)
Quarter: 2016Q3

REPORT INFORMATION
  Report Type: Spontaneous
  Country: US (occurrence: None)
  Receive Date: 20160728
  Receipt Date: 20160728
  Transmission Date: 20161109
  Serious: No
  Sender: FDA-Public Use
  Company Number: None

PATIENT
  Age: 20 Year
  Sex: Female
  Weight: 51.3 kg

DRUGS (6)
  1. MERCAPTOPURINE. [Suspect]
     Active Substance: MERCAPTOPURINE
     Dates: end: 20160502
  2. METHOTREXATE. [Suspect]
     Active Substance: METHOTREXATE
     Dates: end: 20160412
  3. CYCLOPHOSPHAMIDE. [Suspect]
     Active Substance: CYCLOPHOSPHAMIDE
     Dates: end: 20160419
  4. VINCRISTINE SULFATE. [Suspect]
     Active Substance: VINCRISTINE SULFATE
     Dates: end: 20160510
  5. CYTARABINE. [Suspect]
     Active Substance: CYTARABINE
     Dates: end: 20160429
  6. ONCASPAR [Suspect]
     Active Substance: PEGASPARGASE
     Dates: end: 20160303

REACTIONS (12)
  - Pancytopenia [None]
  - Hyperbilirubinaemia [None]
  - Asthenia [None]
  - Pyrexia [None]
  - Neutropenia [None]
  - Hepatotoxicity [None]
  - Hepatosplenic candidiasis [None]
  - Liver function test abnormal [None]
  - Hepatomegaly [None]
  - Candida pneumonia [None]
  - Blood electrolytes abnormal [None]
  - Neuropathy peripheral [None]

NARRATIVE: CASE EVENT DATE: 20160707
